FAERS Safety Report 9103840 (Version 1)
Quarter: 2013Q1

REPORT INFORMATION
  Report Type: Report from Study
  Country: NO (occurrence: NO)
  Receive Date: 20130219
  Receipt Date: 20130219
  Transmission Date: 20140127
  Serious: Yes (Death, Other)
  Sender: FDA-Public Use
  Company Number: NO-ROCHE-1188504

PATIENT
  Age: 88 Year
  Sex: Male

DRUGS (2)
  1. ALTEPLASE [Suspect]
     Indication: CEREBRAL ARTERY OCCLUSION
     Route: 042
  2. HEPARIN [Suspect]
     Indication: CEREBRAL ARTERY OCCLUSION
     Dosage: DOSE: 5000 U, BEFORE THE INTERVENTION
     Route: 013

REACTIONS (2)
  - Death [Fatal]
  - Haemorrhagic infarction [Unknown]
